FAERS Safety Report 19516952 (Version 2)
Quarter: 2021Q3

REPORT INFORMATION
  Report Type: Spontaneous
  Country: IT (occurrence: IT)
  Receive Date: 20210711
  Receipt Date: 20210802
  Transmission Date: 20211014
  Serious: Yes (Hospitalization)
  Sender: FDA-Public Use
  Company Number: IT-BEXIMCO-2021BEX00035

PATIENT
  Age: 44 Year
  Sex: Female

DRUGS (1)
  1. FLECAINIDE ACETATE. [Suspect]
     Active Substance: FLECAINIDE ACETATE
     Indication: SUICIDE ATTEMPT
     Dosage: 20 TABLETS
     Route: 065

REACTIONS (7)
  - Stress cardiomyopathy [Recovered/Resolved]
  - Ventricular fibrillation [Recovered/Resolved]
  - Cardiogenic shock [Recovered/Resolved]
  - Syncope [Recovered/Resolved]
  - Ventricular tachycardia [Recovered/Resolved]
  - Metabolic acidosis [Unknown]
  - Toxicity to various agents [Recovered/Resolved]
